FAERS Safety Report 21440477 (Version 1)
Quarter: 2022Q4

REPORT INFORMATION
  Report Type: Spontaneous
  Country: US (occurrence: US)
  Receive Date: 20221011
  Receipt Date: 20221011
  Transmission Date: 20230112
  Serious: Yes (Other)
  Sender: FDA-Public Use
  Company Number: US-SAOL THERAPEUTICS-2021SAO00145

PATIENT
  Age: 20 Year
  Sex: Male
  Weight: 36.281 kg

DRUGS (2)
  1. BACLOFEN [Suspect]
     Active Substance: BACLOFEN
     Indication: Cerebral palsy
     Dosage: 150.2 MCG/DAY
     Route: 037
     Dates: start: 20161017, end: 20161103
  2. BACLOFEN [Suspect]
     Active Substance: BACLOFEN
     Dosage: 200.2 MCG/DAY
     Route: 037
     Dates: start: 20161103

REACTIONS (6)
  - Cerebrospinal fluid leakage [Unknown]
  - Incision site swelling [Recovered/Resolved]
  - Complication associated with device [Unknown]
  - Therapy non-responder [Unknown]
  - Drug withdrawal syndrome [Recovering/Resolving]
  - Overdose [Recovering/Resolving]

NARRATIVE: CASE EVENT DATE: 20161103
